FAERS Safety Report 9708144 (Version 1)
Quarter: 2013Q4

REPORT INFORMATION
  Report Type: Spontaneous
  Country: US (occurrence: US)
  Receive Date: 20131125
  Receipt Date: 20131125
  Transmission Date: 20140711
  Serious: No
  Sender: FDA-Public Use
  Company Number: US-PFIZER INC-2013336080

PATIENT
  Age: 33 Year
  Sex: Female
  Weight: 79.8 kg

DRUGS (5)
  1. GEODON [Suspect]
     Indication: BIPOLAR DISORDER
     Dosage: 160 MG, 1X/DAY (TAKING 80MG TWO CAPSULES AT BED TIME)
     Route: 048
     Dates: start: 20131112, end: 201311
  2. LAMICTAL [Concomitant]
     Dosage: UNK
  3. TOPAMAX [Concomitant]
     Dosage: UNK
  4. ATIVAN [Concomitant]
     Dosage: UNK
  5. ABILIFY [Concomitant]
     Dosage: 7.5 MG, 1X/DAY

REACTIONS (2)
  - Dysphagia [Unknown]
  - Anxiety [Unknown]
